FAERS Safety Report 12471976 (Version 4)
Quarter: 2016Q3

REPORT INFORMATION
  Report Type: Report from Study
  Country: BR (occurrence: BR)
  Receive Date: 20160616
  Receipt Date: 20160912
  Transmission Date: 20161109
  Serious: Yes (Hospitalization, Other)
  Sender: FDA-Public Use
  Company Number: PHHY2015BR157620

PATIENT
  Sex: Female
  Weight: 48 kg

DRUGS (3)
  1. EXJADE [Suspect]
     Active Substance: DEFERASIROX
     Dosage: 1 DF (10 MG/KG, 500 MG/DAY), QD (30 MINUTES BEFORE LUNCH)
     Route: 048
  2. HYDREA [Concomitant]
     Active Substance: HYDROXYUREA
     Indication: PRODUCT USED FOR UNKNOWN INDICATION
     Route: 065
  3. EXJADE [Suspect]
     Active Substance: DEFERASIROX
     Indication: SICKLE CELL ANAEMIA
     Dosage: 1000 MG AND 750 MG, UNK (DEPENDED ON HOW THE IRON WAS IN HER EXAMS)
     Route: 048
     Dates: start: 2005

REACTIONS (11)
  - Haematocrit decreased [Unknown]
  - Decreased appetite [Unknown]
  - Decreased immune responsiveness [Unknown]
  - Weight decreased [Unknown]
  - Fatigue [Unknown]
  - Somnolence [Unknown]
  - Abasia [Recovering/Resolving]
  - Muscle spasms [Unknown]
  - Malaise [Unknown]
  - Pain [Not Recovered/Not Resolved]
  - Sleep disorder due to general medical condition, insomnia type [Unknown]
